FAERS Safety Report 14501831 (Version 3)
Quarter: 2018Q3

REPORT INFORMATION
  Report Type: Spontaneous
  Country: US (occurrence: US)
  Receive Date: 20180207
  Receipt Date: 20180817
  Transmission Date: 20181010
  Serious: Yes (Hospitalization)
  Sender: FDA-Public Use
  Company Number: US-JNJFOC-20180128799

PATIENT
  Age: 72 Year
  Sex: Male
  Weight: 66.5 kg

DRUGS (11)
  1. NORVASC [Concomitant]
     Active Substance: AMLODIPINE BESYLATE
     Indication: ESSENTIAL HYPERTENSION
     Route: 048
  2. DELTASON [Concomitant]
     Active Substance: PREDNISONE
     Indication: METASTASES TO BONE
     Route: 048
  3. DELTASON [Concomitant]
     Active Substance: PREDNISONE
     Indication: PROSTATE CANCER METASTATIC
     Route: 048
  4. TYLENOL [Concomitant]
     Active Substance: ACETAMINOPHEN
     Indication: PAIN
     Route: 048
  5. ZYTIGA [Suspect]
     Active Substance: ABIRATERONE ACETATE
     Indication: PROSTATE CANCER METASTATIC
     Route: 048
     Dates: start: 20180125
  6. NEURONTIN [Concomitant]
     Active Substance: GABAPENTIN
     Indication: PROSTATE CANCER METASTATIC
     Route: 048
  7. LUPRON [Concomitant]
     Active Substance: LEUPROLIDE ACETATE
     Indication: PROSTATE CANCER METASTATIC
     Route: 065
  8. ZYTIGA [Suspect]
     Active Substance: ABIRATERONE ACETATE
     Indication: PROSTATE CANCER METASTATIC
     Route: 048
  9. CALTRATE 600+D [Concomitant]
     Route: 048
  10. FOLVITE [Concomitant]
     Active Substance: FOLIC ACID
     Route: 048
  11. FEMARA [Concomitant]
     Active Substance: LETROZOLE
     Indication: GYNAECOMASTIA
     Route: 048

REACTIONS (4)
  - Malnutrition [Unknown]
  - Osteonecrosis of jaw [Unknown]
  - Abscess jaw [Unknown]
  - Drug dose omission [Unknown]

NARRATIVE: CASE EVENT DATE: 20180710
